FAERS Safety Report 8272000-5 (Version None)
Quarter: 2012Q2

REPORT INFORMATION
  Report Type: 
  Country: None (occurrence: None)
  Receive Date: 20120410
  Receipt Date: 20120406
  Transmission Date: 20120825
  Serious: No
  Sender: FDA-Public Use
  Company Number: US-TEVA-332467USA

PATIENT
  Sex: Female
  Weight: 46.308 kg

DRUGS (3)
  1. TRI-PREVIFEM [Concomitant]
     Indication: CONTRACEPTION
  2. CLARITIN [Concomitant]
     Indication: HYPERSENSITIVITY
  3. PLAN B ONE-STEP [Suspect]
     Indication: POST COITAL CONTRACEPTION
     Dosage: 1.5 MILLIGRAM;
     Route: 048
     Dates: start: 20120406, end: 20120406

REACTIONS (6)
  - TREMOR [None]
  - FEELING ABNORMAL [None]
  - BLOOD GLUCOSE DECREASED [None]
  - DISTURBANCE IN ATTENTION [None]
  - DIZZINESS [None]
  - NAUSEA [None]
